FAERS Safety Report 6706219-9 (Version None)
Quarter: 2010Q2

REPORT INFORMATION
  Report Type: 
  Country: None (occurrence: None)
  Receive Date: 20100430
  Receipt Date: 20100430
  Transmission Date: 20101027
  Serious: Yes (Hospitalization)
  Sender: FDA-Public Use
  Company Number: None

PATIENT
  Sex: Male
  Weight: 61 kg

DRUGS (2)
  1. CYTARABINE [Suspect]
     Dosage: 1190 MG
  2. DAUNORUBICIN HCL [Suspect]
     Dosage: 450 MG

REACTIONS (1)
  - BRONCHOPULMONARY ASPERGILLOSIS [None]
